FAERS Safety Report 9498499 (Version 2)
Quarter: 2013Q4

REPORT INFORMATION
  Report Type: Spontaneous
  Country: US (occurrence: US)
  Receive Date: 20130904
  Receipt Date: 20131209
  Transmission Date: 20140711
  Serious: Yes (Other)
  Sender: FDA-Public Use
  Company Number: US-VIIV HEALTHCARE LIMITED-A1039883A

PATIENT
  Age: 56 Year
  Sex: Female
  Weight: 57.3 kg

DRUGS (9)
  1. ABACAVIR [Suspect]
     Indication: HIV INFECTION
     Route: 048
     Dates: start: 20130622
  2. LAMIVUDINE-HIV [Suspect]
     Indication: HIV INFECTION
     Route: 048
     Dates: start: 20130622
  3. EFAVIRENZ [Suspect]
     Indication: HIV INFECTION
     Dates: start: 20130622
  4. TRUVADA [Suspect]
     Indication: HIV INFECTION
     Route: 065
     Dates: end: 20130514
  5. NSAID [Suspect]
  6. ACYCLOVIR [Concomitant]
     Indication: PRODUCT USED FOR UNKNOWN INDICATION
     Dosage: 400MG PER DAY
     Route: 048
  7. PLAVIX [Concomitant]
     Dosage: 75MG PER DAY
     Route: 048
  8. LYRICA [Concomitant]
     Dosage: 100MG PER DAY
     Route: 048
  9. SIMVASTATIN [Concomitant]
     Dosage: 20MG PER DAY
     Route: 048

REACTIONS (2)
  - Tubulointerstitial nephritis [Unknown]
  - Blood creatinine increased [Unknown]
